FAERS Safety Report 7140969-8 (Version None)
Quarter: 2010Q4

REPORT INFORMATION
  Report Type: 
  Country: None (occurrence: None)
  Receive Date: 20101201
  Receipt Date: 20101201
  Transmission Date: 20110411
  Serious: No
  Sender: FDA-Public Use
  Company Number: None

PATIENT

DRUGS (1)
  1. AMBIEN CR [Suspect]
     Dosage: 12.5 MILLIGRAMS BOTTLE

REACTIONS (1)
  - HALLUCINATION [None]
